FAERS Safety Report 4435866-2 (Version None)
Quarter: 2004Q3

REPORT INFORMATION
  Report Type: 
  Country: None (occurrence: None)
  Receive Date: 20040726
  Receipt Date: 20040302
  Transmission Date: 20050211
  Serious: No
  Sender: FDA-Public Use
  Company Number: USA040360670

PATIENT
  Age: 50 Year
  Sex: Female

DRUGS (3)
  1. FORTEO [Suspect]
     Dosage: 20 UG DAY
     Dates: start: 20040225, end: 20040229
  2. SINEQUAN [Concomitant]
  3. PREVEACID (LANSOPRAZOLE) [Concomitant]

REACTIONS (6)
  - ASTHENIA [None]
  - DIZZINESS [None]
  - FEELING ABNORMAL [None]
  - MUSCLE CRAMP [None]
  - NAUSEA [None]
  - PAIN [None]
